FAERS Safety Report 19082540 (Version 1)
Quarter: 2021Q2

REPORT INFORMATION
  Report Type: Spontaneous
  Country: US (occurrence: US)
  Receive Date: 20210401
  Receipt Date: 20210401
  Transmission Date: 20210717
  Serious: No
  Sender: FDA-Public Use
  Company Number: None

PATIENT
  Age: 72 Year
  Sex: Male
  Weight: 100.8 kg

DRUGS (13)
  1. LABETALOL 300 MG [Suspect]
     Active Substance: LABETALOL HYDROCHLORIDE
     Indication: HYPERTENSION
     Dosage: ?          QUANTITY:6 TABLET(S);?
     Route: 048
  2. ALLOPUINOL [Concomitant]
     Active Substance: ALLOPURINOL
  3. NIFEDIEPINE ER [Concomitant]
  4. LISINOPRIL. [Concomitant]
     Active Substance: LISINOPRIL
  5. CARVEDILOL. [Concomitant]
     Active Substance: CARVEDILOL
  6. ATORVASTATIN CALCIUM. [Concomitant]
     Active Substance: ATORVASTATIN CALCIUM
  7. METFORMIN HCL [Concomitant]
     Active Substance: METFORMIN HYDROCHLORIDE
  8. BUSPIRONE HCL [Concomitant]
     Active Substance: BUSPIRONE HYDROCHLORIDE
  9. ZOLPIDEM ER [Concomitant]
     Active Substance: ZOLPIDEM TARTRATE
  10. CHLORTHALIDONE. [Concomitant]
     Active Substance: CHLORTHALIDONE
  11. LEVOTHYROXINE. [Concomitant]
     Active Substance: LEVOTHYROXINE
  12. SERTRALINE [Concomitant]
     Active Substance: SERTRALINE HYDROCHLORIDE
  13. CPAP [Concomitant]
     Active Substance: DEVICE

REACTIONS (2)
  - Dysuria [None]
  - Urinary retention [None]

NARRATIVE: CASE EVENT DATE: 20210331
